FAERS Safety Report 16088929 (Version 1)
Quarter: 2019Q1

REPORT INFORMATION
  Report Type: Report from Study
  Country: US (occurrence: US)
  Receive Date: 20190319
  Receipt Date: 20190319
  Transmission Date: 20190418
  Serious: Yes (Hospitalization)
  Sender: FDA-Public Use
  Company Number: US-B.I. PHARMACEUTICALS,INC./RIDGEFIELD-2019-BI-011168

PATIENT
  Age: 57 Year
  Sex: Female

DRUGS (3)
  1. COMBIVENT [Suspect]
     Active Substance: ALBUTEROL SULFATE\IPRATROPIUM BROMIDE
     Indication: CHRONIC OBSTRUCTIVE PULMONARY DISEASE
     Dosage: AS NEEDED3-4TIMES A DAY; STRENGTH:20MCG/100MCG; FORM:INHALATION SPRAY:
     Route: 055
     Dates: start: 2014
  2. DUONEB [Concomitant]
     Active Substance: ALBUTEROL SULFATE\IPRATROPIUM BROMIDE
     Indication: CHRONIC OBSTRUCTIVE PULMONARY DISEASE
     Dosage: 3 TIMES A DAY;  FORM STRENGTH: 0.5MG/3MG; FORMULATION: INHALATION SOLUTION
     Route: 055
     Dates: start: 2009
  3. SYMBICORT [Concomitant]
     Active Substance: BUDESONIDE\FORMOTEROL FUMARATE DIHYDRATE
     Indication: CHRONIC OBSTRUCTIVE PULMONARY DISEASE
     Dosage: BID;  FORM STRENGTH: 160MCG/4.5MCG
     Route: 065
     Dates: start: 201809

REACTIONS (1)
  - Cardiac myxoma [Recovered/Resolved]

NARRATIVE: CASE EVENT DATE: 201810
